FAERS Safety Report 4375220-5 (Version None)
Quarter: 2004Q2

REPORT INFORMATION
  Report Type: 
  Country: None (occurrence: None)
  Receive Date: 20040610
  Receipt Date: 20040602
  Transmission Date: 20050107
  Serious: Yes (Other)
  Sender: FDA-Public Use
  Company Number: PHEH2004US06058

PATIENT
  Age: 23 Year
  Sex: Female

DRUGS (2)
  1. TRILEPTAL [Suspect]
     Indication: CONVULSION
     Dosage: 300 MG, BID
     Route: 048
     Dates: start: 20040529, end: 20040531
  2. TOPAMAX [Concomitant]
     Indication: CONVULSION
     Dosage: 300 MG, UNK

REACTIONS (1)
  - HALLUCINATION, AUDITORY [None]
